FAERS Safety Report 7657289-5 (Version None)
Quarter: 2011Q3

REPORT INFORMATION
  Report Type: 
  Country: None (occurrence: None)
  Receive Date: 20110804
  Receipt Date: 20110726
  Transmission Date: 20111222
  Serious: Yes (Other)
  Sender: FDA-Public Use
  Company Number: PHHY2011US45435

PATIENT
  Sex: Female

DRUGS (3)
  1. MAXZIDE [Concomitant]
     Dosage: UNK UKN, UNK
  2. SYNTHROID [Concomitant]
     Dosage: UNK UKN, UNK
  3. GILENYA [Suspect]
     Indication: MULTIPLE SCLEROSIS
     Dosage: 0.5 MG, DAILY
     Route: 048
     Dates: start: 20110201

REACTIONS (2)
  - BRONCHITIS [None]
  - UPPER RESPIRATORY TRACT INFECTION [None]
